FAERS Safety Report 7770820-4 (Version None)
Quarter: 2011Q3

REPORT INFORMATION
  Report Type: 
  Country: None (occurrence: None)
  Receive Date: 20110922
  Receipt Date: 20110316
  Transmission Date: 20111222
  Serious: No
  Sender: FDA-Public Use
  Company Number: US-ASTRAZENECA-2011SE14692

PATIENT
  Age: 40 Year
  Sex: Male
  Weight: 76 kg

DRUGS (4)
  1. TRAZODONE HCL [Concomitant]
     Indication: SLEEP DISORDER
  2. PROZAC [Concomitant]
     Indication: DEPRESSION
  3. SEROQUEL XR [Suspect]
     Indication: BIPOLAR DISORDER
     Route: 048
  4. LAMICTAL [Concomitant]
     Indication: BIPOLAR DISORDER

REACTIONS (4)
  - DRUG DOSE OMISSION [None]
  - FEELING ABNORMAL [None]
  - LETHARGY [None]
  - INSOMNIA [None]
